FAERS Safety Report 4493568-0 (Version None)
Quarter: 2004Q4

REPORT INFORMATION
  Report Type: 
  Country: None (occurrence: None)
  Receive Date: 20041103
  Receipt Date: 20041103
  Transmission Date: 20050328
  Serious: Yes (Disabling)
  Sender: FDA-Public Use
  Company Number: None

PATIENT
  Sex: Female
  Weight: 56.6996 kg

DRUGS (4)
  1. RID MOUSSE [Suspect]
     Dosage: WHEN SHE WAS A BABY, AFTER HER PARENTS SPLIT UP, EVERY TIME SHE CAME TO VISIT HER DAD SHE HAD
     Dates: start: 19890101, end: 19920101
  2. NIX [Suspect]
  3. TEA TREE OIL [Suspect]
  4. GENERIC LICE TREATMENT [Suspect]

REACTIONS (5)
  - ABNORMAL BEHAVIOUR [None]
  - CONDITION AGGRAVATED [None]
  - LEARNING DISABILITY [None]
  - LICE INFESTATION [None]
  - SPEECH DISORDER [None]
